FAERS Safety Report 8029132-6 (Version None)
Quarter: 2012Q1

REPORT INFORMATION
  Report Type: 
  Country: None (occurrence: None)
  Receive Date: 20120106
  Receipt Date: 20111228
  Transmission Date: 20120608
  Serious: Yes (Hospitalization, Disabling, Other)
  Sender: FDA-Public Use
  Company Number: PHEH2011US009013

PATIENT
  Sex: Female
  Weight: 79.819 kg

DRUGS (1)
  1. GLEEVEC [Suspect]
     Indication: GASTROINTESTINAL STROMAL TUMOUR
     Dosage: 400 MG, DAILY
     Route: 048
     Dates: start: 20110405, end: 20111028

REACTIONS (5)
  - JOINT SWELLING [None]
  - ABASIA [None]
  - HAEMARTHROSIS [None]
  - PAIN IN EXTREMITY [None]
  - JOINT EFFUSION [None]
